FAERS Safety Report 4920989-1 (Version None)
Quarter: 2006Q1

REPORT INFORMATION
  Report Type: 
  Country: None (occurrence: None)
  Receive Date: 20060223
  Receipt Date: 20060216
  Transmission Date: 20060701
  Serious: Yes (Life-Threatening, Hospitalization, Disabling)
  Sender: FDA-Public Use
  Company Number: US-MERCK-0602USA04604

PATIENT
  Age: 71 Year
  Sex: Male

DRUGS (7)
  1. ZOCOR [Suspect]
     Route: 048
     Dates: start: 20051228, end: 20060101
  2. ZOCOR [Suspect]
     Route: 048
     Dates: end: 20051227
  3. ALLOPURINOL [Concomitant]
     Route: 065
  4. ZANTAC [Concomitant]
     Route: 065
  5. ASPIRIN [Concomitant]
     Route: 065
  6. PLAVIX [Concomitant]
     Route: 065
  7. [THERAPY UNSPECIFIED] [Concomitant]
     Route: 065

REACTIONS (6)
  - ASTHENIA [None]
  - BLOOD CREATINE PHOSPHOKINASE INCREASED [None]
  - ERYTHEMA [None]
  - FATIGUE [None]
  - MUSCULOSKELETAL STIFFNESS [None]
  - MYALGIA [None]
